FAERS Safety Report 8546822-7 (Version None)
Quarter: 2012Q3

REPORT INFORMATION
  Report Type: 
  Country: None (occurrence: None)
  Receive Date: 20120727
  Receipt Date: 20120222
  Transmission Date: 20120928
  Serious: No
  Sender: FDA-Public Use
  Company Number: US-ASTRAZENECA-2012SE07796

PATIENT
  Age: 35 Year
  Sex: Female

DRUGS (3)
  1. SEROQUEL [Suspect]
     Dosage: DECREASING THE DOSE BY 50 MG AT A TIME
     Route: 048
  2. SEROQUEL [Suspect]
     Indication: BIPOLAR DISORDER
     Route: 048
     Dates: start: 20040101
  3. SEROQUEL [Suspect]
     Route: 048

REACTIONS (13)
  - MALAISE [None]
  - FEELING ABNORMAL [None]
  - INFLUENZA LIKE ILLNESS [None]
  - MANIA [None]
  - DEPRESSION [None]
  - ANXIETY [None]
  - HEADACHE [None]
  - DRUG DOSE OMISSION [None]
  - INSOMNIA [None]
  - NAUSEA [None]
  - UNDERDOSE [None]
  - HANGOVER [None]
  - DRUG WITHDRAWAL SYNDROME [None]
